FAERS Safety Report 20205916 (Version 3)
Quarter: 2022Q1

REPORT INFORMATION
  Report Type: Report from Study
  Country: US (occurrence: US)
  Receive Date: 20211220
  Receipt Date: 20220221
  Transmission Date: 20220423
  Serious: Yes (Other)
  Sender: FDA-Public Use
  Company Number: US-NOVARTISPH-NVSC2021US288709

PATIENT
  Sex: Male

DRUGS (1)
  1. TASIGNA [Suspect]
     Active Substance: NILOTINIB
     Indication: Product used for unknown indication
     Dosage: UNK
     Route: 065
     Dates: start: 201207

REACTIONS (5)
  - Neoplasm malignant [Unknown]
  - Cerebrovascular accident [Unknown]
  - Deafness [Unknown]
  - Limb mass [Unknown]
  - Pruritus [Unknown]
